FAERS Safety Report 21124136 (Version 1)
Quarter: 2022Q3

REPORT INFORMATION
  Report Type: Spontaneous
  Country: PT (occurrence: PT)
  Receive Date: 20220725
  Receipt Date: 20220725
  Transmission Date: 20221027
  Serious: Yes (Hospitalization, Other)
  Sender: FDA-Public Use
  Company Number: PT-TEO-20221666

PATIENT
  Age: 95 Year
  Sex: Female

DRUGS (2)
  1. CIPROFLOXACIN [Interacting]
     Active Substance: CIPROFLOXACIN
     Indication: Erysipelas
     Dosage: UNK
     Route: 065
  2. WARFARIN [Interacting]
     Active Substance: WARFARIN
     Indication: Atrial fibrillation
     Dosage: UNK
     Route: 065

REACTIONS (13)
  - Acute kidney injury [Unknown]
  - Haemorrhage [Unknown]
  - Renal impairment [Unknown]
  - International normalised ratio increased [Recovered/Resolved]
  - Tachypnoea [Unknown]
  - Hypotension [Unknown]
  - Contusion [Unknown]
  - Tachycardia [Unknown]
  - Fatigue [Unknown]
  - Hypovolaemia [Unknown]
  - Inflammation [Unknown]
  - Drug interaction [Unknown]
  - Anaemia [Unknown]
